FAERS Safety Report 13813756 (Version 12)
Quarter: 2019Q1

REPORT INFORMATION
  Report Type: Spontaneous
  Country: US (occurrence: US)
  Receive Date: 20170731
  Receipt Date: 20190211
  Transmission Date: 20190417
  Serious: Yes (Other)
  Sender: FDA-Public Use
  Company Number: US-PFIZER INC-2017322989

PATIENT
  Age: 80 Year
  Sex: Female
  Weight: 68.27 kg

DRUGS (10)
  1. HYDROCODONE [Concomitant]
     Active Substance: HYDROCODONE
     Dosage: 10.325 MG, (3 TABLETS A DAY IN THE MORNING BY MOUTH, SHE DOES NOT TAKE OVER 4 A DAY)
     Route: 048
  2. LEVOTHYROXINE. [Concomitant]
     Active Substance: LEVOTHYROXINE
     Indication: THYROID DISORDER
     Dosage: 1 DF, 1X/DAY
     Route: 048
  3. XELJANZ XR [Suspect]
     Active Substance: TOFACITINIB CITRATE
     Indication: RHEUMATOID ARTHRITIS
     Dosage: 11 MG, UNK
     Dates: start: 20160917
  4. HYDROCODONE [Concomitant]
     Active Substance: HYDROCODONE
     Indication: PAIN
     Dosage: 7.5 MG, UNK
  5. XELJANZ [Suspect]
     Active Substance: TOFACITINIB CITRATE
     Indication: RHEUMATOID ARTHRITIS
     Dosage: 10 MG, 1X/DAY (TWO TABLETS EVERY MORNING)
     Route: 048
     Dates: start: 2017
  6. LISINOPRIL. [Concomitant]
     Active Substance: LISINOPRIL
     Dosage: 40 MG, 1X/DAY
     Route: 048
  7. VITAMIN D3 [Concomitant]
     Active Substance: CHOLECALCIFEROL
     Dosage: DAILY (SHE WAS TAKING VITAMIN D3 AND TOOK THIS DAILY AND THAT WAS LOWERED)
  8. LISINOPRIL. [Concomitant]
     Active Substance: LISINOPRIL
     Indication: BLOOD PRESSURE ABNORMAL
     Dosage: 20 MG, UNK
     Dates: start: 20160519
  9. VITAMIN B12 [Concomitant]
     Active Substance: CYANOCOBALAMIN
     Dosage: 1 DF, ALTERNATE DAY (STARTED WITH 1 TAB EVERY OTHER DAY)
  10. AMLODIPINE [Concomitant]
     Active Substance: AMLODIPINE BESYLATE
     Indication: BLOOD PRESSURE ABNORMAL
     Dosage: 10 MG, 1X/DAY
     Route: 048

REACTIONS (13)
  - Blood cholesterol increased [Unknown]
  - Hypoaesthesia [Not Recovered/Not Resolved]
  - Neuropathy peripheral [Unknown]
  - Musculoskeletal stiffness [Unknown]
  - Weight increased [Unknown]
  - Loss of personal independence in daily activities [Unknown]
  - Arthropathy [Unknown]
  - Arthralgia [Unknown]
  - Skin lesion [Unknown]
  - Swelling [Unknown]
  - Fall [Unknown]
  - Nodule [Unknown]
  - Pain in extremity [Not Recovered/Not Resolved]

NARRATIVE: CASE EVENT DATE: 201704
